FAERS Safety Report 23127532 (Version 2)
Quarter: 2023Q4

REPORT INFORMATION
  Report Type: Spontaneous
  Country: US (occurrence: None)
  Receive Date: 20231031
  Receipt Date: 20231113
  Transmission Date: 20240109
  Serious: No
  Sender: FDA-Public Use
  Company Number: 2023A219476

PATIENT
  Age: 28050 Day
  Sex: Male

DRUGS (1)
  1. BYDUREON BCISE [Suspect]
     Active Substance: EXENATIDE
     Dosage: 2 MG, WEEK

REACTIONS (3)
  - Injection site discharge [Unknown]
  - Wrong technique in device usage process [Unknown]
  - Device malfunction [Unknown]
